FAERS Safety Report 8524752-4 (Version None)
Quarter: 2012Q3

REPORT INFORMATION
  Report Type: 
  Country: None (occurrence: None)
  Receive Date: 20120720
  Receipt Date: 20120713
  Transmission Date: 20120928
  Serious: Yes (Other)
  Sender: FDA-Public Use
  Company Number: US-ELI_LILLY_AND_COMPANY-US201207004837

PATIENT
  Age: 66 Year
  Sex: Male

DRUGS (2)
  1. HEPARIN [Concomitant]
     Indication: ANTICOAGULANT THERAPY
     Dosage: 5000 IU, UNK
  2. EFFIENT [Suspect]
     Indication: PERCUTANEOUS CORONARY INTERVENTION
     Dosage: 60 MG, LOADING DOSE

REACTIONS (1)
  - THROMBOSIS IN DEVICE [None]
